FAERS Safety Report 9562067 (Version 1)
Quarter: 2013Q3

REPORT INFORMATION
  Report Type: Spontaneous
  Country: US (occurrence: US)
  Receive Date: 20130927
  Receipt Date: 20130927
  Transmission Date: 20140515
  Serious: No
  Sender: FDA-Public Use
  Company Number: US-TEVA-434353USA

PATIENT
  Sex: Male

DRUGS (2)
  1. TREANDA [Suspect]
     Indication: SPLENIC MARGINAL ZONE LYMPHOMA STAGE III
     Route: 042
  2. STEROIDS [Concomitant]
     Indication: RASH

REACTIONS (1)
  - Rash [Recovered/Resolved]
